FAERS Safety Report 9219022 (Version 1)
Quarter: 2013Q2

REPORT INFORMATION
  Report Type: Spontaneous
  Country: BR (occurrence: BR)
  Receive Date: 20130409
  Receipt Date: 20130409
  Transmission Date: 20140414
  Serious: Yes (Other)
  Sender: FDA-Public Use
  Company Number: PHHY2013BR033579

PATIENT
  Sex: Female

DRUGS (5)
  1. CARBAMAZEPINE [Suspect]
     Dosage: 50 MG OR 70 MG, UNK
  2. CARBAMAZEPINE [Suspect]
     Dosage: 100 MG, UNK
  3. NEURAL [Suspect]
  4. PRISTIQ [Suspect]
     Indication: BIPOLAR I DISORDER
     Dosage: 50 MG, DAILY
  5. PRISTIQ [Suspect]
     Dosage: 100 MG, UNK
     Dates: start: 20130311

REACTIONS (12)
  - Bipolar I disorder [Unknown]
  - Hypoglycaemia [Unknown]
  - Eating disorder [Unknown]
  - Oropharyngeal discomfort [Unknown]
  - Irritability [Unknown]
  - Weight decreased [Unknown]
  - Hyperhidrosis [Not Recovered/Not Resolved]
  - Feeling hot [Not Recovered/Not Resolved]
  - Decreased appetite [Not Recovered/Not Resolved]
  - Rash [Unknown]
  - Pigmentation disorder [Unknown]
  - Headache [Unknown]
